FAERS Safety Report 6346285-6 (Version None)
Quarter: 2009Q3

REPORT INFORMATION
  Report Type: 
  Country: None (occurrence: None)
  Receive Date: 20090909
  Receipt Date: 20090829
  Transmission Date: 20100115
  Serious: Yes (Hospitalization)
  Sender: FDA-Public Use
  Company Number: PHEH2009US04326

PATIENT
  Age: 59 Year
  Sex: Female

DRUGS (11)
  1. ZOMETA [Suspect]
     Dosage: 4 MG, 5QD
     Route: 042
     Dates: start: 20090408
  2. MOTRIN [Suspect]
  3. SIMVASTATIN [Suspect]
  4. PROTONIX [Concomitant]
     Dosage: 40 MG, QD
  5. DARVOCET-N 100 [Concomitant]
     Indication: PAIN
     Dosage: Q 4 HR AS NEEDED
  6. HYDROCHLOROTHIAZIDE [Concomitant]
     Dosage: 25 MG, QD
  7. CALCITRIOL [Concomitant]
     Dosage: DAILY
  8. VITAMIN D [Concomitant]
     Dosage: DAILY
  9. LIPITOR [Concomitant]
     Dosage: 10 MG, QD
  10. COREG [Concomitant]
     Dosage: 6.25 MG, BID
  11. REVLIMID [Concomitant]
     Indication: MULTIPLE MYELOMA

REACTIONS (13)
  - BLOOD ALBUMIN DECREASED [None]
  - BLOOD CREATININE INCREASED [None]
  - BLOOD IRON DECREASED [None]
  - BLOOD POTASSIUM DECREASED [None]
  - DEHYDRATION [None]
  - DIALYSIS [None]
  - DYSURIA [None]
  - GLOMERULAR FILTRATION RATE DECREASED [None]
  - IRON BINDING CAPACITY TOTAL DECREASED [None]
  - LETHARGY [None]
  - RENAL FAILURE ACUTE [None]
  - SERUM FERRITIN INCREASED [None]
  - TUBULOINTERSTITIAL NEPHRITIS [None]
